FAERS Safety Report 4697636-X (Version None)
Quarter: 2005Q2

REPORT INFORMATION
  Report Type: 
  Country: None (occurrence: None)
  Receive Date: 20050620
  Receipt Date: 20040604
  Transmission Date: 20051028
  Serious: Yes (Hospitalization, Other)
  Sender: FDA-Public Use
  Company Number: 200414285US

PATIENT
  Age: 66 Year
  Sex: Male

DRUGS (7)
  1. LANTUS [Suspect]
     Indication: DIABETES MELLITUS NON-INSULIN-DEPENDENT
     Dosage: 22-28 U HS
  2. ACCUPRIL [Concomitant]
  3. TIMOLOL MALEATE, DORZOLAMIDE HYDROCHLORIDE (COSOPT) [Concomitant]
  4. BRIMONIDINE TARTRATE (ALPHAGAN) [Concomitant]
  5. LATANOPROST (XALATAN) [Concomitant]
  6. INSULIN HUMAN (NOVOLIN R) [Concomitant]
  7. INSULIN HUMAN INJECTION, ISOPHANE (NOVOLIN N) [Concomitant]

REACTIONS (2)
  - BLOOD GLUCOSE INCREASED [None]
  - HYPOGLYCAEMIA [None]
